FAERS Safety Report 11364740 (Version 1)
Quarter: 2015Q3

REPORT INFORMATION
  Report Type: Spontaneous
  Country: US (occurrence: US)
  Receive Date: 20150811
  Receipt Date: 20150811
  Transmission Date: 20151125
  Serious: No
  Sender: FDA-Public Use
  Company Number: US-NOVOPROD-450183

PATIENT
  Age: 29 Year
  Sex: Male

DRUGS (1)
  1. NOVOEIGHT [Suspect]
     Active Substance: ANTIHEMOPHILIC FACTOR, HUMAN RECOMBINANT
     Indication: PRODUCT USED FOR UNKNOWN INDICATION
     Dosage: 3000 IU, TWICE WEEKLY
     Route: 042
     Dates: start: 20150427, end: 20150513

REACTIONS (2)
  - Dizziness [Unknown]
  - Infusion site bruising [Unknown]
